FAERS Safety Report 6181184-4 (Version None)
Quarter: 2009Q2

REPORT INFORMATION
  Report Type: 
  Country: None (occurrence: None)
  Receive Date: 20090504
  Receipt Date: 20090424
  Transmission Date: 20091009
  Serious: Yes (Hospitalization)
  Sender: FDA-Public Use
  Company Number: 2009AL002427

PATIENT
  Age: 70 Year
  Sex: Male

DRUGS (2)
  1. EPIRUBICIN HCL [Suspect]
     Indication: NEOPLASM MALIGNANT
     Dosage: 20 MG/M**2;QD;IV
     Route: 042
  2. IFOSFAMIDE [Concomitant]

REACTIONS (4)
  - LEUKOPENIA [None]
  - NODULE ON EXTREMITY [None]
  - PAIN IN EXTREMITY [None]
  - PALMAR-PLANTAR ERYTHRODYSAESTHESIA SYNDROME [None]
